FAERS Safety Report 7981176-6 (Version None)
Quarter: 2011Q4

REPORT INFORMATION
  Report Type: 
  Country: None (occurrence: None)
  Receive Date: 20111212
  Receipt Date: 20111202
  Transmission Date: 20120403
  Serious: Yes (Congenital Anomaly)
  Sender: FDA-Public Use
  Company Number: 2011SP056510

PATIENT
  Age: 1 Day
  Sex: Male

DRUGS (6)
  1. VITAMIN [Concomitant]
  2. CARBOLEVURE (CARBOLEVURE /00858201/) [Suspect]
     Indication: MATERNAL EXPOSURE DURING PREGNANCY
     Dosage: TRPL
     Route: 064
     Dates: start: 20101218, end: 20101224
  3. CLARITIN [Suspect]
     Indication: MATERNAL EXPOSURE DURING PREGNANCY
     Dosage: TRPL
     Route: 064
     Dates: start: 20101116, end: 20101222
  4. DESLORATADINE [Suspect]
     Indication: MATERNAL EXPOSURE DURING PREGNANCY
     Dosage: TRPL
     Route: 064
     Dates: start: 20101116, end: 20101222
  5. BACTRIM [Suspect]
     Indication: MATERNAL EXPOSURE DURING PREGNANCY
     Dosage: TRPL
     Route: 064
     Dates: start: 20101218, end: 20101224
  6. JASMINELLE (DROSPIRENONE W/ETHINYLESTRADIOL) [Suspect]
     Indication: MATERNAL EXPOSURE DURING PREGNANCY
     Dosage: TRPL
     Route: 064
     Dates: start: 20101116, end: 20101222

REACTIONS (3)
  - MATERNAL DRUGS AFFECTING FOETUS [None]
  - CRYPTORCHISM [None]
  - CONGENITAL NAEVUS [None]
